FAERS Safety Report 11113998 (Version 3)
Quarter: 2016Q2

REPORT INFORMATION
  Report Type: Report from Study
  Country: AU (occurrence: AU)
  Receive Date: 20150514
  Receipt Date: 20160413
  Transmission Date: 20160815
  Serious: Yes (Death, Other)
  Sender: FDA-Public Use
  Company Number: AU-ARIAD PHARMACEUTICALS, INC-2015AU004916

PATIENT
  Age: 67 Year
  Sex: Female

DRUGS (2)
  1. PONATINIB [Suspect]
     Active Substance: PONATINIB
     Indication: PRODUCT USED FOR UNKNOWN INDICATION
     Dosage: UNK
     Route: 048
     Dates: start: 20111216, end: 20121206
  2. CHEMOTHERAPY [Suspect]
     Active Substance: UNSPECIFIED INGREDIENT
     Indication: CHRONIC MYELOID LEUKAEMIA

REACTIONS (3)
  - Aortic stenosis [Unknown]
  - Sepsis [Unknown]
  - Chronic myeloid leukaemia recurrent [Fatal]

NARRATIVE: CASE EVENT DATE: 20140617
